FAERS Safety Report 7606856-3 (Version None)
Quarter: 2011Q3

REPORT INFORMATION
  Report Type: 
  Country: None (occurrence: None)
  Receive Date: 20110713
  Receipt Date: 20110707
  Transmission Date: 20111222
  Serious: Yes (Other)
  Sender: FDA-Public Use
  Company Number: US-GLAXOSMITHKLINE-A0936404A

PATIENT
  Age: 83 Year
  Sex: Female

DRUGS (1)
  1. COREG [Suspect]
     Indication: PRODUCT USED FOR UNKNOWN INDICATION
     Dosage: 6.25MG UNKNOWN
     Route: 065
     Dates: start: 20090209

REACTIONS (1)
  - UPPER LIMB FRACTURE [None]
